FAERS Safety Report 8461748-5 (Version None)
Quarter: 2012Q2

REPORT INFORMATION
  Report Type: 
  Country: None (occurrence: None)
  Receive Date: 20120625
  Receipt Date: 20120613
  Transmission Date: 20120825
  Serious: Yes (Hospitalization)
  Sender: FDA-Public Use
  Company Number: DE-JNJFOC-20120606060

PATIENT
  Age: 31 Year
  Sex: Female

DRUGS (10)
  1. SEROQUEL XR [Suspect]
     Route: 048
     Dates: start: 20110601, end: 20111201
  2. VALPROATE SODIUM [Suspect]
     Route: 048
  3. RISPERDAL [Suspect]
     Route: 048
     Dates: start: 20110601, end: 20120101
  4. SEROQUEL XR [Suspect]
     Route: 048
     Dates: start: 20090201, end: 20100115
  5. VALPROATE SODIUM [Suspect]
     Indication: PRODUCT USED FOR UNKNOWN INDICATION
     Route: 048
  6. RISPERDAL CONSTA [Suspect]
     Indication: SCHIZOPHRENIA, PARANOID TYPE
     Route: 030
  7. VALPROATE SODIUM [Suspect]
     Route: 048
  8. RISPERDAL [Suspect]
     Indication: SCHIZOPHRENIA, PARANOID TYPE
     Route: 048
     Dates: start: 20020301
  9. RISPERDAL CONSTA [Suspect]
     Route: 030
     Dates: start: 20110701
  10. SEROQUEL XR [Suspect]
     Indication: PRODUCT USED FOR UNKNOWN INDICATION
     Route: 048
     Dates: start: 20120101

REACTIONS (2)
  - WEIGHT INCREASED [None]
  - HOSPITALISATION [None]
